FAERS Safety Report 4602190-4 (Version None)
Quarter: 2005Q2

REPORT INFORMATION
  Report Type: 
  Country: None (occurrence: None)
  Receive Date: 20050215
  Receipt Date: 20040928
  Transmission Date: 20051028
  Serious: Yes (Life-Threatening)
  Sender: FDA-Public Use
  Company Number: MC200400637

PATIENT
  Sex: Male

DRUGS (2)
  1. ANGIOMAX [Suspect]
     Indication: CORONARY ANGIOPLASTY
     Dosage: 0.75 MG/KG, BOLUS, IV BOLUS; 1.75 MG/KG/HR, INTRAVENOUS
     Route: 040
     Dates: start: 20040927, end: 20040927
  2. ANGIOMAX [Suspect]
     Indication: CORONARY ANGIOPLASTY
     Dosage: 0.75 MG/KG, BOLUS, IV BOLUS; 1.75 MG/KG/HR, INTRAVENOUS
     Route: 040
     Dates: start: 20040927, end: 20040927

REACTIONS (1)
  - CORONARY ARTERY THROMBOSIS [None]
